FAERS Safety Report 6178360-3 (Version None)
Quarter: 2009Q2

REPORT INFORMATION
  Report Type: 
  Country: None (occurrence: None)
  Receive Date: 20090504
  Receipt Date: 20090424
  Transmission Date: 20091009
  Serious: Yes (Other)
  Sender: FDA-Public Use
  Company Number: JP-ABBOTT-09P-087-0570081-00

PATIENT
  Age: 3 Year
  Sex: Female
  Weight: 7.1 kg

DRUGS (5)
  1. SEVOFLURANE [Suspect]
     Indication: INDUCTION AND MAINTENANCE OF ANAESTHESIA
     Dosage: UNKNOWN
     Route: 042
  2. PENTAZOCINE LACTATE [Suspect]
     Indication: ANALGESIA
     Route: 042
  3. MIDAZOLAM HCL [Concomitant]
     Indication: PREMEDICATION
     Route: 065
  4. NITROUS OXIDE [Concomitant]
     Indication: INDUCTION AND MAINTENANCE OF ANAESTHESIA
     Dosage: UNKNOWN
     Route: 055
  5. OXYGEN [Concomitant]
     Indication: INDUCTION AND MAINTENANCE OF ANAESTHESIA
     Dosage: UNKNOWN/33%/21%
     Route: 055

REACTIONS (3)
  - CARDIAC FAILURE ACUTE [None]
  - PYREXIA [None]
  - RESPIRATORY FAILURE [None]
